FAERS Safety Report 7402880-4 (Version None)
Quarter: 2011Q2

REPORT INFORMATION
  Report Type: 
  Country: None (occurrence: None)
  Receive Date: 20110408
  Receipt Date: 20110102
  Transmission Date: 20111010
  Serious: No
  Sender: FDA-Public Use
  Company Number: US-BAYER-2011-027288

PATIENT
  Sex: Female

DRUGS (1)
  1. ONE A DAY ENERGY [Suspect]

REACTIONS (2)
  - FEELING JITTERY [None]
  - FEELING ABNORMAL [None]
